FAERS Safety Report 15143625 (Version 3)
Quarter: 2018Q3

REPORT INFORMATION
  Report Type: Report from Study
  Country: None (occurrence: US)
  Receive Date: 20180713
  Receipt Date: 20180827
  Transmission Date: 20181010
  Serious: Yes (Other)
  Sender: FDA-Public Use
  Company Number: US-ABBVIE-18K-163-2250056-00

PATIENT
  Age: 64 Year
  Sex: Female

DRUGS (7)
  1. HUMIRA [Suspect]
     Active Substance: ADALIMUMAB
     Route: 058
     Dates: start: 2018
  2. METHOTREXATE. [Suspect]
     Active Substance: METHOTREXATE
     Route: 065
     Dates: start: 2018
  3. PREDNISONE. [Concomitant]
     Active Substance: PREDNISONE
     Indication: PRODUCT USED FOR UNKNOWN INDICATION
     Dosage: TAKE 1/2 PILL FOR ONE WEEK
  4. HUMIRA [Suspect]
     Active Substance: ADALIMUMAB
     Indication: PSORIASIS
     Route: 058
     Dates: start: 20180125, end: 2018
  5. METHOTREXATE. [Suspect]
     Active Substance: METHOTREXATE
     Indication: PSORIATIC ARTHROPATHY
     Route: 065
     Dates: end: 2018
  6. HUMIRA [Suspect]
     Active Substance: ADALIMUMAB
     Indication: PSORIATIC ARTHROPATHY
     Route: 058
     Dates: start: 201711, end: 20180109
  7. PREDNISONE. [Concomitant]
     Active Substance: PREDNISONE
     Dosage: TAKE 1/2 PILL FOR ONE WEEK

REACTIONS (21)
  - Carpal tunnel syndrome [Unknown]
  - Rash pruritic [Unknown]
  - Skin discolouration [Unknown]
  - Intervertebral disc protrusion [Unknown]
  - Fibromyalgia [Unknown]
  - Neuropathy peripheral [Not Recovered/Not Resolved]
  - Road traffic accident [Unknown]
  - Cataract [Unknown]
  - Wrong technique in product usage process [Unknown]
  - Arthritis [Unknown]
  - Weight increased [Unknown]
  - Rash papular [Unknown]
  - Pain in extremity [Unknown]
  - Osteoarthritis [Unknown]
  - Post-traumatic pain [Unknown]
  - Injection site mass [Unknown]
  - Drug dose omission [Unknown]
  - Influenza [Recovered/Resolved]
  - Alcohol problem [Unknown]
  - Urinary tract infection [Recovered/Resolved]
  - Injection site bruising [Unknown]

NARRATIVE: CASE EVENT DATE: 201801
